FAERS Safety Report 10229377 (Version 2)
Quarter: 2015Q1

REPORT INFORMATION
  Report Type: Report from Study
  Country: CA (occurrence: CA)
  Receive Date: 20140611
  Receipt Date: 20150103
  Transmission Date: 20150720
  Serious: Yes (Death, Other)
  Sender: FDA-Public Use
  Company Number: CA-BRISTOL-MYERS SQUIBB COMPANY-20953832

PATIENT
  Sex: Female

DRUGS (9)
  1. ABATACEPT [Suspect]
     Active Substance: ABATACEPT
     Indication: RHEUMATOID ARTHRITIS
     Dosage: 125 MG, QWK
     Route: 058
     Dates: start: 20130821
  2. VITAMIN D [Concomitant]
     Active Substance: CHOLECALCIFEROL
  3. METHOTREXATE [Concomitant]
     Active Substance: METHOTREXATE
  4. EXTERNAL-PREDNISONE [Concomitant]
  5. MILK THISTLE [Concomitant]
     Active Substance: MILK THISTLE
  6. LOSEC [Concomitant]
     Active Substance: OMEPRAZOLE
  7. SULFASALAZINE. [Concomitant]
     Active Substance: SULFASALAZINE
  8. INDOMETHACIN. [Concomitant]
     Active Substance: INDOMETHACIN
  9. CALCIUM [Concomitant]
     Active Substance: CALCIUM

REACTIONS (1)
  - Death [Fatal]
